FAERS Safety Report 4728265-7 (Version None)
Quarter: 2005Q3

REPORT INFORMATION
  Report Type: 
  Country: None (occurrence: None)
  Receive Date: 20050727
  Receipt Date: 20050714
  Transmission Date: 20060218
  Serious: Yes (Other)
  Sender: FDA-Public Use
  Company Number: 2005103498

PATIENT
  Sex: Male

DRUGS (2)
  1. NEURONTIN [Suspect]
     Indication: BIPOLAR DISORDER
  2. ALL OTHER THERAPEUTICS PRODUCTS (ALL OTHER THERAPEUTICS PRODUCTS) [Suspect]
     Indication: OVERDOSE

REACTIONS (4)
  - DRUG INEFFECTIVE [None]
  - INJURY [None]
  - MULTIPLE DRUG OVERDOSE [None]
  - SUICIDE ATTEMPT [None]
